FAERS Safety Report 9700079 (Version 1)
Quarter: 2013Q4

REPORT INFORMATION
  Report Type: Spontaneous
  Country: ZA (occurrence: ZA)
  Receive Date: 20131121
  Receipt Date: 20131121
  Transmission Date: 20140711
  Serious: No
  Sender: FDA-Public Use
  Company Number: ZA-JNJFOC-20131103994

PATIENT
  Sex: Male

DRUGS (3)
  1. DUROGESIC [Suspect]
     Indication: PAIN
     Route: 062
     Dates: start: 20131103
  2. MST CONTINUS [Concomitant]
     Route: 048
  3. MORPHINE [Concomitant]
     Route: 065

REACTIONS (3)
  - Product quality issue [Unknown]
  - Pain [Recovered/Resolved]
  - Wrong technique in drug usage process [Unknown]
